FAERS Safety Report 23334859 (Version 2)
Quarter: 2023Q4

REPORT INFORMATION
  Report Type: Spontaneous
  Country: NZ (occurrence: NZ)
  Receive Date: 20231224
  Receipt Date: 20231228
  Transmission Date: 20240109
  Serious: Yes (Hospitalization, Other)
  Sender: FDA-Public Use
  Company Number: NZ-BAXTER-2023BAX038641

PATIENT
  Age: 53 Year
  Sex: Male
  Weight: 78.2 kg

DRUGS (35)
  1. DOXORUBICIN [Suspect]
     Active Substance: DOXORUBICIN
     Indication: Diffuse large B-cell lymphoma
     Dosage: 96 MG, EVERY 3 WEEKS
     Route: 042
     Dates: start: 20230831
  2. CYCLOPHOSPHAMIDE [Suspect]
     Active Substance: CYCLOPHOSPHAMIDE
     Indication: Diffuse large B-cell lymphoma
     Dosage: 1440 MG, EVERY 3 WEEKS
     Route: 042
     Dates: start: 20230831
  3. EPCORITAMAB [Suspect]
     Active Substance: EPCORITAMAB
     Indication: Diffuse large B-cell lymphoma
     Dosage: 48 MG C1 (STEP-UP), CYCLES 2-4 (21-DAY CYCLE, WEEKLY DOSE), C5-8 (21-DAY CYCLE, EVERY 3 WEEKS) PER P
     Route: 058
     Dates: start: 20230831
  4. VINCRISTINE [Suspect]
     Active Substance: VINCRISTINE
     Indication: Diffuse large B-cell lymphoma
     Dosage: 2 MG, EVERY 3 WEEKS
     Route: 042
     Dates: start: 20230831
  5. PREDNISONE [Suspect]
     Active Substance: PREDNISONE
     Indication: Diffuse large B-cell lymphoma
     Dosage: 100 MG DAILY C1-6, DAY 1-5, EVERY 1 DAYS
     Route: 048
     Dates: start: 20230831
  6. RITUXIMAB [Suspect]
     Active Substance: RITUXIMAB
     Indication: Diffuse large B-cell lymphoma
     Dosage: 700 MG, EVERY 3 WEEKS
     Route: 042
     Dates: start: 20230831
  7. SERTRALINE [Concomitant]
     Active Substance: SERTRALINE HYDROCHLORIDE
     Indication: Depression
     Dosage: 50 MG, EVERY 1 DAYS
     Route: 065
     Dates: start: 20230719
  8. OMEPRAZOLE [Concomitant]
     Active Substance: OMEPRAZOLE
     Indication: Intestinal obstruction
     Dosage: 40 MG, EVERY 1 DAYS
     Route: 065
     Dates: start: 20230818
  9. ENOXAPARIN SODIUM [Concomitant]
     Active Substance: ENOXAPARIN SODIUM
     Indication: Thrombosis prophylaxis
     Dosage: 40 MG, EVERY 1 DAYS
     Route: 065
     Dates: start: 20230818
  10. ALLOPURINOL [Concomitant]
     Active Substance: ALLOPURINOL
     Indication: Prophylaxis
     Dosage: 300 MG, EVERY 1 DAYS
     Route: 065
     Dates: start: 20230826
  11. ENTECAVIR [Concomitant]
     Active Substance: ENTECAVIR
     Indication: Antiviral prophylaxis
     Dosage: 0.5 MG, EVERY 1 DAYS
     Route: 065
     Dates: start: 20230829
  12. ACETAMINOPHEN [Concomitant]
     Active Substance: ACETAMINOPHEN
     Indication: Abdominal pain
     Dosage: 1000 MG, AS NECESSARY (FROM: 2022)
     Route: 065
  13. ACETAMINOPHEN\CAFFEINE [Concomitant]
     Active Substance: ACETAMINOPHEN\CAFFEINE
     Indication: Post lumbar puncture syndrome
     Dosage: PARACETAMOL 500 MG + CAFFEINE 65 MG, AS NECESSARY
     Route: 065
     Dates: start: 20230828
  14. POTASSIUM CHLORIDE\SODIUM CHLORIDE [Concomitant]
     Active Substance: POTASSIUM CHLORIDE\SODIUM CHLORIDE
     Indication: Fluid replacement
     Dosage: 1000 ML, AS NECESSARY
     Route: 065
     Dates: start: 20230823
  15. MORPHINE SULFATE [Concomitant]
     Active Substance: MORPHINE SULFATE
     Indication: Abdominal pain
     Dosage: 2.5-5 MG, AS NECESSARY
     Route: 065
     Dates: start: 20230817
  16. ONDANSETRON [Concomitant]
     Active Substance: ONDANSETRON
     Indication: Nausea
     Dosage: 4-8 MG, AS NECESSARY
     Route: 065
     Dates: start: 20230817
  17. CYCLIZINE [Concomitant]
     Active Substance: CYCLIZINE
     Indication: Nausea
     Dosage: 12.5-25 MG, AS NECESSARY
     Route: 065
     Dates: start: 20230817
  18. LACTULOSE [Concomitant]
     Active Substance: LACTULOSE
     Indication: Constipation
     Dosage: 10-20 ML, AS NECESSARY
     Route: 065
     Dates: start: 20230819
  19. NYSTATINA [Concomitant]
     Indication: Candida infection
     Dosage: 1 ML, EVERY 1 DAYS
     Route: 065
     Dates: start: 20230803
  20. COTRIMOXAZOLE [Concomitant]
     Active Substance: SULFAMETHOXAZOLE\TRIMETHOPRIM
     Indication: Antifungal prophylaxis
     Dosage: 240 MG/5 ML SOLUTION WHEN ON NJ, 960 MG QOD
     Route: 065
     Dates: start: 20230901
  21. POLYETHYLENE GLYCOL 3350\POTASSIUM CHLORIDE\SODIUM BICARBONATE\SODIUM [Concomitant]
     Active Substance: POLYETHYLENE GLYCOL 3350\POTASSIUM CHLORIDE\SODIUM BICARBONATE\SODIUM CHLORIDE
     Indication: Constipation
     Dosage: 1-2 SACHETS, AS NECESSARY (FROM: OCT-2022)
     Route: 065
  22. VALGANCICLOVIR [Concomitant]
     Active Substance: VALGANCICLOVIR
     Indication: Antiviral prophylaxis
     Dosage: 50 MG, EVERY 1 DAYS
     Route: 065
     Dates: start: 20230906
  23. AMOXICILLIN\CLAVULANIC ACID [Concomitant]
     Active Substance: AMOXICILLIN\CLAVULANIC ACID
     Indication: Pyrexia
     Dosage: 1.2 G, EVERY 8 HOURS
     Route: 065
     Dates: start: 20230913
  24. ELECTROLYTES NOS [Concomitant]
     Active Substance: ELECTROLYTES NOS
     Indication: Pyrexia
     Dosage: 3000 ML, AS NECESSARY
     Route: 065
     Dates: start: 20230913
  25. Laxol [Concomitant]
     Indication: Abdominal distension
     Dosage: 100 G, AS NECESSARY
     Route: 065
     Dates: start: 20230907
  26. Micolette [Concomitant]
     Indication: Constipation
     Dosage: 1 AMPULE, AS NECESSARY
     Route: 065
     Dates: start: 20230925
  27. SODIUM BICARBONATE [Concomitant]
     Active Substance: SODIUM BICARBONATE
     Indication: Pharyngeal ulceration
     Dosage: 5 G ROUTE : ORAL GAVAGE, AS NECESSARY
     Route: 050
     Dates: start: 20231022
  28. ACETAMINOPHEN [Concomitant]
     Active Substance: ACETAMINOPHEN
     Indication: Pyrexia
     Dosage: 1 G, EVERY 4 HOURS, START DATE: 2022
     Route: 065
  29. ACETAMINOPHEN [Concomitant]
     Active Substance: ACETAMINOPHEN
     Indication: Headache
     Dosage: 1 G, EVERY 4 HOURS
     Route: 065
     Dates: start: 20231110
  30. ACETAMINOPHEN [Concomitant]
     Active Substance: ACETAMINOPHEN
     Indication: Myalgia
  31. Ural [Concomitant]
     Indication: Dysuria
     Dosage: 4 G, EVERY 6 HOURS
     Route: 065
     Dates: start: 20231112
  32. PEGFILGRASTIM [Concomitant]
     Active Substance: PEGFILGRASTIM
     Indication: Neutrophil count decreased
     Dosage: 6 MG, AS NECESSARY
     Route: 065
     Dates: start: 20230803
  33. ZOPICLONE [Concomitant]
     Active Substance: ZOPICLONE
     Indication: Insomnia
     Dosage: 7.5 MG, EVERY 1 DAYS
     Route: 065
     Dates: start: 20231122
  34. LORATADINE [Concomitant]
     Active Substance: LORATADINE
     Indication: Prophylaxis
     Dosage: 10 MG, AS NECESSARY
     Route: 065
     Dates: start: 20230831
  35. LORATADINE [Concomitant]
     Active Substance: LORATADINE
     Indication: Premedication

REACTIONS (12)
  - Lethargy [Unknown]
  - Febrile neutropenia [Recovered/Resolved]
  - White blood cell count decreased [Unknown]
  - Thrombocytopenia [Not Recovered/Not Resolved]
  - Fatigue [Unknown]
  - Constipation [Not Recovered/Not Resolved]
  - Abdominal distension [Unknown]
  - Abdominal pain upper [Unknown]
  - Decreased appetite [Unknown]
  - Flatulence [Unknown]
  - Asthenia [Unknown]
  - Neutropenia [Recovered/Resolved]

NARRATIVE: CASE EVENT DATE: 20231204
